FAERS Safety Report 12250550 (Version 1)
Quarter: 2016Q2

REPORT INFORMATION
  Report Type: Spontaneous
  Country: US (occurrence: US)
  Receive Date: 20160408
  Receipt Date: 20160408
  Transmission Date: 20160815
  Serious: No
  Sender: FDA-Public Use
  Company Number: ALCN2016US002429

PATIENT
  Sex: Female

DRUGS (2)
  1. PILOCARPINE HCL [Suspect]
     Active Substance: PILOCARPINE HYDROCHLORIDE
     Dosage: 1 GTT, QD
     Route: 047
     Dates: start: 20160405
  2. PILOCARPINE HCL [Suspect]
     Active Substance: PILOCARPINE HYDROCHLORIDE
     Indication: GLAUCOMA
     Dosage: 1 GTT, TID
     Route: 047
     Dates: start: 20160402, end: 20160403

REACTIONS (1)
  - Headache [Recovering/Resolving]

NARRATIVE: CASE EVENT DATE: 20160403
